FAERS Safety Report 24568613 (Version 1)
Quarter: 2024Q4

REPORT INFORMATION
  Report Type: Spontaneous
  Country: BR (occurrence: BR)
  Receive Date: 20241031
  Receipt Date: 20241031
  Transmission Date: 20250115
  Serious: Yes (Hospitalization)
  Sender: BAYER HEALTHCARE PHARMACEUTICALS INC.
  Company Number: BR-BAYER-2024A151340

PATIENT
  Age: 73 Year
  Sex: Male

DRUGS (1)
  1. NEXAVAR [Suspect]
     Active Substance: SORAFENIB
     Indication: Hepatic cancer
     Dosage: 400 MG, QD (2 TABLETS A DAY 400MG)
     Dates: start: 202201

REACTIONS (4)
  - Cerebral ischaemia [Recovering/Resolving]
  - Speech disorder [Recovering/Resolving]
  - Pre-existing condition improved [Recovering/Resolving]
  - Off label use [None]

NARRATIVE: CASE EVENT DATE: 20220101
